FAERS Safety Report 4967480-4 (Version None)
Quarter: 2006Q2

REPORT INFORMATION
  Report Type: 
  Country: None (occurrence: None)
  Receive Date: 20060404
  Receipt Date: 20060330
  Transmission Date: 20061013
  Serious: Yes (Other)
  Sender: FDA-Public Use
  Company Number: ITWYE518030MAR06

PATIENT
  Age: 43 Year
  Sex: Female

DRUGS (1)
  1. EFFEXOR [Suspect]
     Dosage: 37.5 MG 1X PER 1DAY ORAL
     Route: 048
     Dates: start: 20060224, end: 20060224

REACTIONS (5)
  - AGITATION [None]
  - HYPERTENSIVE CRISIS [None]
  - MALAISE [None]
  - MYDRIASIS [None]
  - TREMOR [None]
